FAERS Safety Report 25809238 (Version 2)
Quarter: 2025Q3

REPORT INFORMATION
  Report Type: Spontaneous
  Country: JP (occurrence: JP)
  Receive Date: 20250916
  Receipt Date: 20250930
  Transmission Date: 20251021
  Serious: Yes (Hospitalization)
  Sender: NEUROCRINE BIOSCIENCES
  Company Number: JP-MTPC-MTPC2025-0016162

PATIENT
  Age: 85 Year
  Sex: Female

DRUGS (1)
  1. VALBENAZINE [Suspect]
     Active Substance: VALBENAZINE
     Indication: Product used for unknown indication
     Route: 048

REACTIONS (3)
  - Dysphagia [Unknown]
  - Aspiration [Unknown]
  - Oxygen saturation decreased [Unknown]
